FAERS Safety Report 21259708 (Version 1)
Quarter: 2022Q3

REPORT INFORMATION
  Report Type: Spontaneous
  Country: US (occurrence: None)
  Receive Date: 20220825
  Receipt Date: 20220825
  Transmission Date: 20221027
  Serious: Yes (Hospitalization)
  Sender: FDA-Public Use
  Company Number: None

PATIENT
  Age: 76 Year
  Sex: Male

DRUGS (19)
  1. ADEMPAS [Suspect]
     Active Substance: RIOCIGUAT
     Indication: Pulmonary hypertension
     Dosage: FREQUENCY : 3 TIMES A DAY;?
     Route: 048
     Dates: start: 20190213
  2. FUROSEMIDE [Concomitant]
     Active Substance: FUROSEMIDE
  3. FOSAMAX [Concomitant]
     Active Substance: ALENDRONATE SODIUM
  4. AMLODIPINE [Concomitant]
     Active Substance: AMLODIPINE BESYLATE
  5. MONTELUKAST [Concomitant]
     Active Substance: MONTELUKAST SODIUM
  6. PLAVIX [Concomitant]
     Active Substance: CLOPIDOGREL BISULFATE
  7. BISOPROLOL [Concomitant]
     Active Substance: BISOPROLOL
  8. ROSUVASTATIN [Concomitant]
     Active Substance: ROSUVASTATIN
  9. PANTOPRAZOLE [Concomitant]
     Active Substance: PANTOPRAZOLE
  10. WARFARIN [Concomitant]
     Active Substance: WARFARIN
  11. INSULIN LISPRO [Concomitant]
     Active Substance: INSULIN LISPRO
  12. NPH INSULIN [Concomitant]
     Active Substance: INSULIN BEEF
  13. LIDODERM [Concomitant]
     Active Substance: LIDOCAINE
  14. LEXAPRO [Concomitant]
     Active Substance: ESCITALOPRAM OXALATE
  15. Citracal w Vit D3 [Concomitant]
  16. OXYGEN [Concomitant]
     Active Substance: OXYGEN
  17. VITAMIN D3 [Concomitant]
     Active Substance: CHOLECALCIFEROL
  18. FERROUS SULFATE [Concomitant]
     Active Substance: FERROUS SULFATE
  19. WIXELA INHUB [Concomitant]
     Active Substance: FLUTICASONE PROPIONATE\SALMETEROL XINAFOATE

REACTIONS (3)
  - Deep vein thrombosis [None]
  - Acute left ventricular failure [None]
  - Cellulitis [None]

NARRATIVE: CASE EVENT DATE: 20220822
